FAERS Safety Report 9384395 (Version 2)
Quarter: 2013Q3

REPORT INFORMATION
  Report Type: Report from Study
  Country: BR (occurrence: BR)
  Receive Date: 20130705
  Receipt Date: 20130802
  Transmission Date: 20140515
  Serious: Yes (Other)
  Sender: FDA-Public Use
  Company Number: PHHY2013BR070567

PATIENT
  Sex: Female
  Weight: 75 kg

DRUGS (8)
  1. EXELON PATCH [Suspect]
     Indication: MEMORY IMPAIRMENT
     Dosage: 9.5 MG / 24 HOURS (10CM2)
     Route: 062
  2. EXELON PATCH [Suspect]
     Dosage: 9.5 MG / 24 HOURS (10CM2)
     Route: 062
     Dates: start: 20130615
  3. RITALINA [Suspect]
     Indication: ASTHENIA
     Dosage: 1 DF, QD (IN THE MORNING)
     Route: 048
  4. RITALINA [Suspect]
     Indication: OFF LABEL USE
  5. CALCIUM + VITAMIN D [Concomitant]
     Indication: OSTEOPOROSIS
     Dosage: 1 DF, QD
     Route: 048
  6. MESALAZINE [Concomitant]
     Indication: DIVERTICULITIS
     Dosage: 2 DF, Q12H (USE FRO 8 DAYS IN MONTH)
     Route: 048
  7. OSTEOBAN [Concomitant]
     Indication: OSTEOPOROSIS
     Dosage: 1 DF, QMO
     Route: 048
  8. VENALOT                            /00843801/ [Concomitant]
     Indication: VARICOSE VEIN
     Dosage: 1 DF, QD
     Route: 048

REACTIONS (6)
  - Apnoea [Recovered/Resolved]
  - Malaise [Recovered/Resolved]
  - Fatigue [Not Recovered/Not Resolved]
  - Dysphagia [Recovered/Resolved]
  - Asthenia [Not Recovered/Not Resolved]
  - Tongue dry [Recovered/Resolved]
